FAERS Safety Report 23861272 (Version 2)
Quarter: 2024Q3

REPORT INFORMATION
  Report Type: Report from Study
  Country: US (occurrence: US)
  Receive Date: 20240516
  Receipt Date: 20240805
  Transmission Date: 20241016
  Serious: Yes (Hospitalization, Other)
  Sender: ABBVIE
  Company Number: US-ABBVIE-5759609

PATIENT
  Sex: Female

DRUGS (1)
  1. SKYRIZI [Suspect]
     Active Substance: RISANKIZUMAB-RZAA
     Indication: Psoriatic arthropathy
     Route: 058
     Dates: start: 20240306

REACTIONS (9)
  - Sepsis [Recovered/Resolved with Sequelae]
  - Psoriatic arthropathy [Recovering/Resolving]
  - Abscess [Recovering/Resolving]
  - Gangrene [Recovering/Resolving]
  - Cataract [Recovering/Resolving]
  - Memory impairment [Unknown]
  - Hand deformity [Unknown]
  - Drug ineffective [Unknown]
  - Joint warmth [Recovering/Resolving]

NARRATIVE: CASE EVENT DATE: 20240101
